FAERS Safety Report 25214719 (Version 1)
Quarter: 2025Q2

REPORT INFORMATION
  Report Type: Spontaneous
  Country: US (occurrence: None)
  Receive Date: 20250417
  Receipt Date: 20250417
  Transmission Date: 20250717
  Serious: No
  Sender: FDA-CTU
  Company Number: None

PATIENT
  Age: 64 Year
  Sex: Male
  Weight: 103 kg

DRUGS (2)
  1. METFORMIN HYDROCHLORIDE [Suspect]
     Active Substance: METFORMIN HYDROCHLORIDE
     Indication: Diabetes mellitus
     Dosage: FREQUENCY : TWICE A DAY;?
     Route: 048
  2. DIVALPROEX SODIUM [Suspect]
     Active Substance: DIVALPROEX SODIUM

REACTIONS (8)
  - Acute kidney injury [None]
  - Tubulointerstitial nephritis [None]
  - Hypercalcaemia [None]
  - Hypovolaemia [None]
  - Hypophagia [None]
  - Renal tubular necrosis [None]
  - Nephrosclerosis [None]
  - Inflammation [None]

NARRATIVE: CASE EVENT DATE: 20230515
